FAERS Safety Report 19942759 (Version 1)
Quarter: 2021Q4

REPORT INFORMATION
  Report Type: Spontaneous
  Country: ES (occurrence: ES)
  Receive Date: 20211011
  Receipt Date: 20211011
  Transmission Date: 20220303
  Serious: Yes (Hospitalization)
  Sender: FDA-Public Use
  Company Number: ES-SEATTLE GENETICS-2021SGN05113

PATIENT
  Sex: Female

DRUGS (4)
  1. TUKYSA [Suspect]
     Active Substance: TUCATINIB
     Indication: HER2 positive breast cancer
     Dosage: 300 MG, BID
     Dates: start: 202108
  2. TUKYSA [Suspect]
     Active Substance: TUCATINIB
     Indication: Metastases to central nervous system
  3. CAPECITABINE [Suspect]
     Active Substance: CAPECITABINE
     Indication: HER2 positive breast cancer
  4. CAPECITABINE [Suspect]
     Active Substance: CAPECITABINE
     Indication: Metastases to central nervous system

REACTIONS (3)
  - General physical health deterioration [Unknown]
  - Hypoalbuminaemia [Unknown]
  - Diarrhoea [Unknown]
